FAERS Safety Report 4971781-3 (Version None)
Quarter: 2006Q2

REPORT INFORMATION
  Report Type: 
  Country: None (occurrence: None)
  Receive Date: 20060413
  Receipt Date: 20060316
  Transmission Date: 20061013
  Serious: Yes (Hospitalization)
  Sender: FDA-Public Use
  Company Number: 2006SE01636

PATIENT
  Age: 31214 Day
  Sex: Female

DRUGS (6)
  1. NEXIUM [Suspect]
     Indication: HELICOBACTER INFECTION
     Route: 048
     Dates: start: 20051201, end: 20060216
  2. MAREVAN [Concomitant]
  3. DIGITOXIN TAB [Concomitant]
  4. DIURAL [Concomitant]
  5. ZANIDIP [Concomitant]
  6. ZOCOR [Concomitant]

REACTIONS (6)
  - COMA [None]
  - DELIRIUM [None]
  - HALLUCINATION, VISUAL [None]
  - LOSS OF CONSCIOUSNESS [None]
  - SOMNOLENCE [None]
  - STUPOR [None]
